FAERS Safety Report 19513981 (Version 11)
Quarter: 2023Q2

REPORT INFORMATION
  Report Type: Spontaneous
  Country: CA (occurrence: CA)
  Receive Date: 20210709
  Receipt Date: 20230424
  Transmission Date: 20230721
  Serious: Yes (Other)
  Sender: FDA-Public Use
  Company Number: CA-PFIZER INC-2021567951

PATIENT
  Age: 80 Year
  Sex: Female
  Weight: 95 kg

DRUGS (14)
  1. RUXIENCE [Suspect]
     Active Substance: RITUXIMAB-PVVR
     Indication: Granulomatosis with polyangiitis
     Dosage: 1000 MG (Q 0 AND 2 WEEKS)
     Route: 041
     Dates: start: 20201207, end: 20201222
  2. RUXIENCE [Suspect]
     Active Substance: RITUXIMAB-PVVR
     Dosage: 1000 MG (Q 0 AND 2 WEEKS)
     Route: 041
     Dates: start: 20210511, end: 20210525
  3. RUXIENCE [Suspect]
     Active Substance: RITUXIMAB-PVVR
     Dosage: 1000 MG (Q 0 AND 2 WEEKS)
     Route: 041
     Dates: start: 20210511
  4. RUXIENCE [Suspect]
     Active Substance: RITUXIMAB-PVVR
     Dosage: 1000 MG (Q 0 AND 2 WEEKS)
     Route: 041
     Dates: start: 20210525
  5. RUXIENCE [Suspect]
     Active Substance: RITUXIMAB-PVVR
     Dosage: 1000 MG (Q 0 AND 2 WEEKS)
     Route: 041
     Dates: start: 20211103, end: 20211117
  6. RUXIENCE [Suspect]
     Active Substance: RITUXIMAB-PVVR
     Dosage: 1000 MG (Q 0 AND 2 WEEKS)
     Route: 041
     Dates: start: 20211117
  7. RUXIENCE [Suspect]
     Active Substance: RITUXIMAB-PVVR
     Dosage: 1000 MG (Q 0 AND 2 WEEKS)
     Route: 041
     Dates: start: 20211130
  8. RUXIENCE [Suspect]
     Active Substance: RITUXIMAB-PVVR
     Dosage: 1000 MG (Q 0 AND 2 WEEKS)
     Route: 041
     Dates: start: 20211130
  9. RUXIENCE [Suspect]
     Active Substance: RITUXIMAB-PVVR
     Dosage: 1000 MG (Q 0 AND 2 WEEKS)
     Route: 042
     Dates: start: 20220606, end: 20220620
  10. RUXIENCE [Suspect]
     Active Substance: RITUXIMAB-PVVR
     Dosage: 1000 MG (Q 0 AND 2 WEEKS)
     Route: 042
     Dates: start: 20220620
  11. RUXIENCE [Suspect]
     Active Substance: RITUXIMAB-PVVR
     Dosage: 1000 MG (Q 0 AND 2 WEEKS)
     Route: 042
     Dates: start: 20220118
  12. RUXIENCE [Suspect]
     Active Substance: RITUXIMAB-PVVR
     Dosage: 1000 MG (Q 0 AND 2 WEEKS)
     Route: 042
     Dates: start: 20221205
  13. RUXIENCE [Suspect]
     Active Substance: RITUXIMAB-PVVR
     Dosage: 1000 MG (Q 0 AND 2 WEEKS)
     Route: 042
     Dates: start: 20221205, end: 20230118
  14. RUXIENCE [Suspect]
     Active Substance: RITUXIMAB-PVVR
     Dosage: 1000 MG DAY 1 AND 15 (NOT YET STARTED)(RETREATMENT SUBSEQUENTINFUSION 255 MIN)
     Route: 042

REACTIONS (7)
  - Rheumatoid arthritis [Unknown]
  - Infusion site extravasation [Unknown]
  - COVID-19 [Unknown]
  - Malaise [Recovered/Resolved]
  - Off label use [Unknown]
  - Off label use [Unknown]
  - Intentional product use issue [Unknown]

NARRATIVE: CASE EVENT DATE: 20210511
